FAERS Safety Report 13578964 (Version 1)
Quarter: 2017Q2

REPORT INFORMATION
  Report Type: Spontaneous
  Country: US (occurrence: US)
  Receive Date: 20170524
  Receipt Date: 20170524
  Transmission Date: 20170830
  Serious: No
  Sender: FDA-Public Use
  Company Number: US-JAZZ-2017-US-005504

PATIENT
  Age: 38 Year
  Sex: Female

DRUGS (7)
  1. XYREM [Suspect]
     Active Substance: SODIUM OXYBATE
     Dosage: 3 G, QD, FIRST DOSE
     Route: 048
     Dates: start: 201210
  2. XYREM [Suspect]
     Active Substance: SODIUM OXYBATE
     Dosage: 1.5G, QD, SECOND DOSE
     Route: 048
     Dates: start: 201210
  3. LEVETIRACETAM. [Concomitant]
     Active Substance: LEVETIRACETAM
  4. ZONEGRAN [Concomitant]
     Active Substance: ZONISAMIDE
  5. ZARONTIN [Concomitant]
     Active Substance: ETHOSUXIMIDE
  6. VIMPAT [Concomitant]
     Active Substance: LACOSAMIDE
  7. XYREM [Suspect]
     Active Substance: SODIUM OXYBATE
     Indication: INSOMNIA
     Dosage: 1.5G, BID
     Route: 048
     Dates: start: 201206, end: 201206

REACTIONS (1)
  - Malaise [Unknown]

NARRATIVE: CASE EVENT DATE: 201704
